FAERS Safety Report 16961782 (Version 1)
Quarter: 2019Q4

REPORT INFORMATION
  Report Type: Spontaneous
  Country: US (occurrence: US)
  Receive Date: 20191025
  Receipt Date: 20191025
  Transmission Date: 20200122
  Serious: Yes (Other)
  Sender: FDA-Public Use
  Company Number: US-PFIZER INC-2019459406

PATIENT
  Age: 61 Year
  Sex: Male

DRUGS (4)
  1. CIALIS [Suspect]
     Active Substance: TADALAFIL
     Indication: ERECTILE DYSFUNCTION
     Dosage: 20 MG, WEEKLY
     Dates: start: 20080326
  2. CIALIS [Suspect]
     Active Substance: TADALAFIL
     Dosage: 5 MG, WEEKLY
     Dates: end: 20150821
  3. CIALIS [Suspect]
     Active Substance: TADALAFIL
     Dosage: 10 MG, WEEKLY
  4. VIAGRA [Suspect]
     Active Substance: SILDENAFIL CITRATE
     Indication: ERECTILE DYSFUNCTION
     Dosage: 50 MG, WEEKLY
     Dates: start: 20001104, end: 20030424

REACTIONS (1)
  - Malignant melanoma [Unknown]

NARRATIVE: CASE EVENT DATE: 20120905
